FAERS Safety Report 19143507 (Version 1)
Quarter: 2021Q2

REPORT INFORMATION
  Report Type: Report from Study
  Country: US (occurrence: US)
  Receive Date: 20210416
  Receipt Date: 20210416
  Transmission Date: 20210717
  Serious: Yes (Death, Other)
  Sender: FDA-Public Use
  Company Number: US-ACADIA PHARMACEUTICALS INC.-ACA-2021-PIM-001339

PATIENT
  Age: 84 Year
  Sex: Male
  Weight: 87 kg

DRUGS (2)
  1. NUPLAZID [Suspect]
     Active Substance: PIMAVANSERIN TARTRATE
     Indication: PARKINSON^S DISEASE
     Dosage: 54 MILLIGRAM, QD (TWO 10 MG TABLETS AND ONE 34 MG CAPSULE)
     Route: 048
  2. NUPLAZID [Suspect]
     Active Substance: PIMAVANSERIN TARTRATE
     Indication: PARKINSON^S DISEASE
     Dosage: 54 MILLIGRAM, QD (TWO 10 MG TABLETS AND ONE 34 MG CAPSULE)
     Route: 048

REACTIONS (2)
  - Overdose [Unknown]
  - Death [Fatal]

NARRATIVE: CASE EVENT DATE: 20210211
